FAERS Safety Report 4309662-0 (Version None)
Quarter: 2004Q1

REPORT INFORMATION
  Report Type: 
  Country: None (occurrence: None)
  Receive Date: 20040301
  Receipt Date: 20040220
  Transmission Date: 20041129
  Serious: Yes (Hospitalization, Other)
  Sender: FDA-Public Use
  Company Number: 2004200721FR

PATIENT
  Age: 57 Year
  Sex: Male

DRUGS (12)
  1. ALDACTONE [Suspect]
     Dosage: 1 DF, DAILY, ORAL
     Route: 048
     Dates: end: 20030830
  2. CORDARONE [Suspect]
     Dosage: 3 DF, IV
     Route: 042
     Dates: start: 20030825, end: 20030830
  3. LASIX [Suspect]
     Dosage: 2 DF, IV
     Route: 042
     Dates: start: 20030825, end: 20030830
  4. TIAPRIDAL (TIAPRIDE) [Suspect]
     Indication: PROPHYLAXIS
     Dosage: 3 DF, IV
     Route: 042
     Dates: start: 20030825, end: 20030830
  5. KALEORID [Concomitant]
  6. SERESTA [Concomitant]
  7. AUGMENTIN ORAL [Concomitant]
  8. OFLOXACIN [Concomitant]
  9. LOVENOX [Concomitant]
  10. NITRODERM [Concomitant]
  11. POTASSIUM [Concomitant]
  12. OXAZEPAM [Concomitant]

REACTIONS (7)
  - ATRIAL FIBRILLATION [None]
  - AV DISSOCIATION [None]
  - CARDIAC FAILURE CONGESTIVE [None]
  - ELECTROCARDIOGRAM QT PROLONGED [None]
  - HYPOKALAEMIA [None]
  - TORSADE DE POINTES [None]
  - VENTRICULAR FIBRILLATION [None]
